FAERS Safety Report 7121063-9 (Version None)
Quarter: 2010Q4

REPORT INFORMATION
  Report Type: 
  Country: None (occurrence: None)
  Receive Date: 20101124
  Receipt Date: 20101117
  Transmission Date: 20110411
  Serious: Yes (Death)
  Sender: FDA-Public Use
  Company Number: JP-JNJFOC-20100307346

PATIENT
  Sex: Male
  Weight: 50 kg

DRUGS (14)
  1. ITRIZOLE [Suspect]
     Indication: BRONCHOPULMONARY ASPERGILLOSIS
     Route: 042
  2. ITRIZOLE [Suspect]
     Route: 042
  3. ITRIZOLE [Suspect]
     Route: 048
  4. OMEPRAL [Concomitant]
     Indication: GASTRIC ULCER
     Route: 048
  5. OMEPRAL [Concomitant]
     Route: 048
  6. FIRSTCIN [Concomitant]
     Indication: PNEUMONIA
     Route: 042
  7. PREDNISOLONE ACETATE [Concomitant]
     Indication: INTERSTITIAL LUNG DISEASE
     Route: 042
  8. OMEPRAL [Concomitant]
     Route: 036
  9. VITAMEDIN [Concomitant]
     Indication: HYPOVITAMINOSIS
     Route: 042
  10. PREDNISOLONE [Concomitant]
     Indication: INTERSTITIAL LUNG DISEASE
     Route: 048
  11. PREDNISOLONE [Concomitant]
     Route: 048
  12. MAGMITT [Concomitant]
     Indication: CONSTIPATION
     Route: 048
  13. MAGMITT [Concomitant]
     Route: 048
  14. POSTERISAN [Concomitant]
     Indication: ANAL FISTULA
     Route: 054

REACTIONS (5)
  - BRONCHOPULMONARY ASPERGILLOSIS [None]
  - HYPOCHLORAEMIA [None]
  - HYPONATRAEMIA [None]
  - INTERSTITIAL LUNG DISEASE [None]
  - RESPIRATORY FAILURE [None]
